FAERS Safety Report 7498549-0 (Version None)
Quarter: 2011Q2

REPORT INFORMATION
  Report Type: 
  Country: None (occurrence: None)
  Receive Date: 20110524
  Receipt Date: 20091130
  Transmission Date: 20111010
  Serious: Yes (Death, Hospitalization, Other)
  Sender: FDA-Public Use
  Company Number: US-BAYER-200941080NA

PATIENT
  Age: 58 Year
  Sex: Female
  Weight: 57 kg

DRUGS (26)
  1. HYDROXYZINE [Concomitant]
     Dosage: 20 MG, UNK
     Route: 042
     Dates: start: 20060718, end: 20060718
  2. MILRINONE [Concomitant]
     Dosage: 20 MG, UNK
     Route: 042
     Dates: start: 20060714, end: 20060802
  3. DIPHENHYDRAMINE HCL [Concomitant]
     Dosage: 50 MG, UNK
     Route: 042
  4. CAPTOPRIL [Concomitant]
     Route: 048
  5. PROTAMINE SULFATE [Concomitant]
     Dosage: 350 MG, UNK
     Route: 042
     Dates: start: 20060712
  6. LEVOPHED [Concomitant]
  7. VECURONIUM BROMIDE [Concomitant]
     Dosage: 125 MG, UNK
     Route: 042
     Dates: start: 20060717
  8. CIPROFLOXACIN [Concomitant]
     Dosage: 400 MG, BID
     Route: 048
     Dates: start: 20060721, end: 20060731
  9. INSULIN [Concomitant]
     Dosage: UNK
     Route: 042
     Dates: start: 20060821
  10. TRASYLOL [Suspect]
     Indication: MITRAL VALVE REPAIR
     Dosage: UNK
     Route: 042
     Dates: start: 20060712, end: 20060712
  11. VERSED [Concomitant]
     Dosage: 100 MG, UNK
     Route: 042
     Dates: start: 20060713, end: 20060713
  12. TRASYLOL [Suspect]
     Indication: HEART TRANSPLANT
     Dosage: 200 ML BOLUS THEN DRIP AT 50 ML/HR
     Route: 042
     Dates: start: 20060821, end: 20060821
  13. AMBIEN [Concomitant]
     Dosage: 400 MG, BID
     Route: 048
  14. SPIRONOLACTONE [Concomitant]
  15. DOBUTAMINE HYDROCHLORIDE [Concomitant]
     Dosage: 3 MCQ/KG/MIN
     Route: 042
     Dates: start: 20060713
  16. ACETAMINOPHEN [Concomitant]
     Dosage: 650 MG, UNK
  17. ZITHROMAX [Concomitant]
     Indication: VIRAL INFECTION
     Dosage: 250 MG/I PACK
  18. REGLAN [Concomitant]
     Dosage: 20 MG, UNK
     Route: 042
     Dates: start: 20060714, end: 20060715
  19. VANCOMYCIN [Concomitant]
     Dosage: 1 G, UNK
     Route: 042
     Dates: start: 20060713
  20. VASOPRESSIN [Concomitant]
     Dosage: 100 U, UNK
     Route: 042
  21. AMIODARONE HCL [Concomitant]
     Dosage: 720 MG, UNK
     Route: 042
     Dates: start: 20060713, end: 20060726
  22. IMITREX [Concomitant]
     Dosage: 100 MG, UNK
     Route: 048
  23. HEPARIN [Concomitant]
     Dosage: 25000 U, UNK
     Route: 042
     Dates: start: 20060713, end: 20060731
  24. LASIX [Concomitant]
     Dosage: 40 MG, BID
     Route: 042
     Dates: start: 20060713, end: 20060713
  25. LIDOCAINE [Concomitant]
     Dosage: 2 G, UNK
     Route: 042
     Dates: start: 20060713
  26. NITROGLYCERIN [Concomitant]
     Dosage: 5 MCQ/ MIN
     Route: 042

REACTIONS (13)
  - MULTI-ORGAN FAILURE [None]
  - RENAL INJURY [None]
  - DEATH [None]
  - RENAL FAILURE [None]
  - STRESS [None]
  - INJURY [None]
  - RENAL IMPAIRMENT [None]
  - ANXIETY [None]
  - EMOTIONAL DISTRESS [None]
  - UNEVALUABLE EVENT [None]
  - FEAR [None]
  - PAIN [None]
  - ANHEDONIA [None]
